FAERS Safety Report 18700681 (Version 1)
Quarter: 2021Q1

REPORT INFORMATION
  Report Type: Spontaneous
  Country: US (occurrence: US)
  Receive Date: 20210105
  Receipt Date: 20210105
  Transmission Date: 20210419
  Serious: No
  Sender: FDA-Public Use
  Company Number: US-ALLERGAN-2034859US

PATIENT
  Sex: Female

DRUGS (1)
  1. PREDNISOLONE UNK [Suspect]
     Active Substance: PREDNISOLONE
     Indication: EYE OPERATION
     Dosage: 1 GTT, TID
     Route: 047

REACTIONS (2)
  - Product delivery mechanism issue [Unknown]
  - Product storage error [Unknown]
